FAERS Safety Report 14788738 (Version 2)
Quarter: 2018Q2

REPORT INFORMATION
  Report Type: Spontaneous
  Country: HU (occurrence: HU)
  Receive Date: 20180423
  Receipt Date: 20180516
  Transmission Date: 20180711
  Serious: Yes (Death, Other)
  Sender: FDA-Public Use
  Company Number: HU-ROCHE-2109705

PATIENT
  Age: 1 Year
  Sex: Female
  Weight: 9 kg

DRUGS (5)
  1. ACETAMINOPHEN. [Concomitant]
     Active Substance: ACETAMINOPHEN
     Indication: PREMEDICATION
     Route: 065
  2. CICLOSPORIN [Concomitant]
     Active Substance: CYCLOSPORINE
     Indication: IMMUNOSUPPRESSION
     Route: 065
  3. FOSCARNET SODIUM. [Suspect]
     Active Substance: FOSCARNET SODIUM
     Indication: PNEUMONIA CYTOMEGALOVIRAL
     Route: 065
  4. TOCILIZUMAB. [Concomitant]
     Active Substance: TOCILIZUMAB
     Indication: IMMUNOSUPPRESSION
     Route: 065
  5. GANCICLOVIR. [Suspect]
     Active Substance: GANCICLOVIR
     Indication: PNEUMONIA CYTOMEGALOVIRAL
     Route: 065

REACTIONS (4)
  - Mechanical ventilation [Unknown]
  - Respiratory failure [Fatal]
  - Off label use [Unknown]
  - Intentional product use issue [Unknown]
